FAERS Safety Report 17847522 (Version 2)
Quarter: 2020Q2

REPORT INFORMATION
  Report Type: Report from Study
  Country: FI (occurrence: FI)
  Receive Date: 20200601
  Receipt Date: 20200610
  Transmission Date: 20200714
  Serious: Yes (Other)
  Sender: FDA-Public Use
  Company Number: FI-MYLANLABS-2020M1053004

PATIENT
  Age: 36 Year
  Sex: Male

DRUGS (17)
  1. LEPONEX [Suspect]
     Active Substance: CLOZAPINE
     Indication: SCHIZOPHRENIA
     Dosage: 25 MILLIGRAM
     Dates: start: 20200330, end: 20200331
  2. LEPONEX [Suspect]
     Active Substance: CLOZAPINE
     Dosage: 12.5 UNK
     Dates: start: 20200402, end: 20200403
  3. LEPONEX [Suspect]
     Active Substance: CLOZAPINE
     Dosage: 50 MG + 100 MG
     Dates: start: 20200417, end: 20200421
  4. LEPONEX [Suspect]
     Active Substance: CLOZAPINE
     Dosage: 25 MG + 25 MG
     Dates: start: 20200405, end: 20200406
  5. LEPONEX [Suspect]
     Active Substance: CLOZAPINE
     Dosage: 50 MG + 150 MG
     Dates: start: 20200424, end: 20200428
  6. LEPONEX [Suspect]
     Active Substance: CLOZAPINE
     Dosage: 50 MG + 125 MG
     Dates: start: 20200421, end: 20200424
  7. LEPONEX [Suspect]
     Active Substance: CLOZAPINE
     Dosage: 50 MG + 175 MG
     Dates: start: 20200428, end: 20200501
  8. OLANZAPINE. [Concomitant]
     Active Substance: OLANZAPINE
     Dosage: UP TO 30 MG A DAY
     Dates: start: 20200217, end: 20200411
  9. LEPONEX [Suspect]
     Active Substance: CLOZAPINE
     Dosage: 12.5 MG +12.5 MG
     Dates: start: 20200403, end: 20200404
  10. LEPONEX [Suspect]
     Active Substance: CLOZAPINE
     Dosage: 12.5 MG + 25 MG
     Dates: start: 20200404, end: 20200405
  11. LEPONEX [Suspect]
     Active Substance: CLOZAPINE
     Dosage: 25 MG + 50 MG
     Dates: start: 20200406, end: 20200409
  12. LEPONEX [Suspect]
     Active Substance: CLOZAPINE
     Dosage: 50 MG + 75 MG
     Dates: start: 20200414, end: 20200417
  13. LEPONEX [Suspect]
     Active Substance: CLOZAPINE
     Dosage: 50 MG + 200 MG
     Dates: start: 20200501
  14. OLANZAPINE. [Concomitant]
     Active Substance: OLANZAPINE
     Indication: SCHIZOPHRENIA
     Dosage: UP TO 20 MG A DAY
     Dates: start: 2020, end: 20200217
  15. ABILIFY [Concomitant]
     Active Substance: ARIPIPRAZOLE
     Dosage: UP TO 20 MG ONCE A DAY
     Dates: start: 20200512
  16. ABILIFY [Concomitant]
     Active Substance: ARIPIPRAZOLE
     Indication: SCHIZOPHRENIA
     Dosage: 10 MILLIGRAM, QD
     Dates: start: 20200428, end: 20200512
  17. LEPONEX [Suspect]
     Active Substance: CLOZAPINE
     Dosage: 50 MG + 50 MG
     Dates: start: 20200409, end: 20200414

REACTIONS (17)
  - C-reactive protein increased [Not Recovered/Not Resolved]
  - Heart rate increased [Not Recovered/Not Resolved]
  - Nasopharyngitis [Recovered/Resolved]
  - Sinus tachycardia [Recovering/Resolving]
  - Oropharyngeal pain [Recovered/Resolved]
  - Adverse event [Not Recovered/Not Resolved]
  - Pyrexia [Recovered/Resolved]
  - C-reactive protein decreased [Unknown]
  - Electrocardiogram T wave amplitude decreased [Recovering/Resolving]
  - Ear congestion [Recovering/Resolving]
  - Productive cough [Recovered/Resolved]
  - Leukocytosis [Not Recovered/Not Resolved]
  - Neutrophil count increased [Not Recovered/Not Resolved]
  - Dysphonia [Recovering/Resolving]
  - Rhinorrhoea [Recovering/Resolving]
  - Excessive cerumen production [Recovering/Resolving]
  - Nasal congestion [Recovering/Resolving]

NARRATIVE: CASE EVENT DATE: 2020
